FAERS Safety Report 15309577 (Version 1)
Quarter: 2018Q3

REPORT INFORMATION
  Report Type: Spontaneous
  Country: US (occurrence: US)
  Receive Date: 20180812
  Receipt Date: 20180812
  Transmission Date: 20181010
  Serious: Yes (Other)
  Sender: FDA-Public Use
  Company Number: None

PATIENT
  Age: 26 Year
  Sex: Male
  Weight: 97.6 kg

DRUGS (12)
  1. BENTYL (DICYCLOMINE) [Concomitant]
  2. ATIVAN [Concomitant]
     Active Substance: LORAZEPAM
  3. LOPRESSOR [Concomitant]
     Active Substance: METOPROLOL TARTRATE
  4. ZEGERID (OMEPRAZOLE) [Concomitant]
  5. VITAMIN D3 [Concomitant]
     Active Substance: CHOLECALCIFEROL
  6. IMITREX [Concomitant]
     Active Substance: SUMATRIPTAN SUCCINATE
  7. ZOFRAN (ONDANSETRON) [Concomitant]
  8. ESCITALOPRAM, GENERIC FOR LEXAPRO [Suspect]
     Active Substance: ESCITALOPRAM OXALATE
     Indication: ANXIETY
     Dosage: ?          QUANTITY:1 TABLET(S);?
     Route: 048
     Dates: start: 20180530, end: 20180717
  9. NEURONTIN [Concomitant]
     Active Substance: GABAPENTIN
  10. TORADOL (KETOROLAC) [Concomitant]
  11. SIMETHICONE (DIMETHICONE) [Concomitant]
     Active Substance: DIMETHICONE
  12. VITAMIN B12 [Concomitant]
     Active Substance: CYANOCOBALAMIN

REACTIONS (6)
  - Dizziness [None]
  - Anxiety [None]
  - Depression [None]
  - Nausea [None]
  - Vomiting [None]
  - Confusional state [None]

NARRATIVE: CASE EVENT DATE: 20180601
